FAERS Safety Report 8620152-7 (Version None)
Quarter: 2012Q3

REPORT INFORMATION
  Report Type: 
  Country: None (occurrence: None)
  Receive Date: 20120824
  Receipt Date: 20120821
  Transmission Date: 20120928
  Serious: Yes (Hospitalization, Other)
  Sender: FDA-Public Use
  Company Number: JP-PFIZER INC-2012171286

PATIENT
  Age: 73 Year
  Sex: Female

DRUGS (7)
  1. CADUET [Concomitant]
     Indication: DYSLIPIDAEMIA
  2. FAMOTIDINE [Concomitant]
     Indication: GASTRITIS
     Dosage: UNK
     Route: 048
     Dates: start: 20111007, end: 20120714
  3. MYONAL [Concomitant]
     Indication: MUSCULOSKELETAL STIFFNESS
     Dosage: UNK
     Route: 048
     Dates: start: 20111007, end: 20120714
  4. DEPAS [Concomitant]
     Indication: NEUROSIS
     Dosage: UNK
     Route: 048
     Dates: start: 20111007, end: 20120714
  5. SOLU-CORTEF [Suspect]
     Indication: DRUG HYPERSENSITIVITY
     Dosage: 500 MG, 2X/DAY
     Route: 042
     Dates: start: 20120714, end: 20120716
  6. CADUET [Concomitant]
     Indication: HYPERTENSION
     Dosage: UNK
     Route: 048
     Dates: start: 20111007, end: 20120714
  7. ZOLPIDEM [Concomitant]
     Indication: INSOMNIA
     Dosage: UNK
     Route: 048
     Dates: start: 20111007, end: 20120714

REACTIONS (6)
  - HALLUCINATION [None]
  - AGITATION [None]
  - CONFUSIONAL STATE [None]
  - HALLUCINATION, AUDITORY [None]
  - ABNORMAL BEHAVIOUR [None]
  - RESTLESSNESS [None]
